FAERS Safety Report 24686928 (Version 1)
Quarter: 2024Q4

REPORT INFORMATION
  Report Type: Spontaneous
  Country: US (occurrence: None)
  Receive Date: 20241130
  Receipt Date: 20241130
  Transmission Date: 20250115
  Serious: Yes (Other)
  Sender: Public
  Company Number: None

PATIENT
  Age: 38 Year
  Sex: Female
  Weight: 51.75 kg

DRUGS (6)
  1. EMGALITY [Suspect]
     Active Substance: GALCANEZUMAB-GNLM
     Indication: Migraine prophylaxis
     Dosage: 1 INJECTION MONTHLY SUBCUTANEOUS?
     Route: 058
  2. DROSPIRENONE-EE [Concomitant]
  3. DEXTROAMPHETAMINE SACCHARATE, AMPHETAMINE ASPARTATE, DEXTROAMPHETAMINE [Concomitant]
     Active Substance: AMPHETAMINE ASPARTATE\AMPHETAMINE SULFATE\DEXTROAMPHETAMINE SACCHARATE\DEXTROAMPHETAMINE SULFATE
  4. ELETRIPTAN HYDROBROMIDE [Concomitant]
     Active Substance: ELETRIPTAN HYDROBROMIDE
  5. MAGNEISUM CITRATE [Concomitant]
  6. DUCCOLAX [Concomitant]

REACTIONS (3)
  - Constipation [None]
  - Fatigue [None]
  - Apathy [None]

NARRATIVE: CASE EVENT DATE: 20241110
